FAERS Safety Report 13950712 (Version 1)
Quarter: 2017Q3

REPORT INFORMATION
  Report Type: Spontaneous
  Country: US (occurrence: US)
  Receive Date: 20170908
  Receipt Date: 20170908
  Transmission Date: 20171128
  Serious: No
  Sender: FDA-Public Use
  Company Number: US-ROCHE-1131647

PATIENT
  Sex: Male
  Weight: 101.24 kg

DRUGS (5)
  1. AZITHROMYCIN ANHYDROUS. [Concomitant]
     Active Substance: AZITHROMYCIN ANHYDROUS
  2. RITUXAN [Suspect]
     Active Substance: RITUXIMAB
     Indication: OFF LABEL USE
  3. TYLENOL [Concomitant]
     Active Substance: ACETAMINOPHEN
  4. RITUXAN [Suspect]
     Active Substance: RITUXIMAB
     Indication: WALDENSTROM^S MACROGLOBULINAEMIA
     Route: 065
     Dates: start: 19990928
  5. ADVIL [Concomitant]
     Active Substance: IBUPROFEN

REACTIONS (11)
  - Throat irritation [Unknown]
  - Musculoskeletal disorder [Unknown]
  - Mass [Unknown]
  - Nasopharyngitis [Unknown]
  - Cough [Unknown]
  - Headache [Unknown]
  - Hypoaesthesia [Unknown]
  - Skin hypertrophy [Unknown]
  - Ear congestion [Unknown]
  - Pyrexia [Unknown]
  - Erythema [Unknown]
